FAERS Safety Report 7426014-5 (Version None)
Quarter: 2011Q2

REPORT INFORMATION
  Report Type: 
  Country: None (occurrence: None)
  Receive Date: 20110420
  Receipt Date: 20110411
  Transmission Date: 20111010
  Serious: Yes (Hospitalization)
  Sender: FDA-Public Use
  Company Number: GB-ROCHE-771679

PATIENT
  Sex: Male

DRUGS (7)
  1. ALBUTEROL SULFATE AUTOHALER [Concomitant]
     Dosage: INHALER
     Dates: start: 20020511
  2. DOXAZOSIN [Concomitant]
     Dates: start: 20040903
  3. NIFEDIPINE [Concomitant]
     Dates: start: 20020511, end: 20110327
  4. LOSARTAN [Concomitant]
     Dates: start: 20050606
  5. PRAVASTATIN [Concomitant]
     Dates: start: 20040903
  6. MYCOPHENOLATE MOFETIL [Suspect]
     Dosage: INDICATION PER PROTOCOL
     Route: 065
     Dates: start: 20020511
  7. BELATACEPT [Suspect]
     Route: 042
     Dates: start: 20020511

REACTIONS (2)
  - UROSEPSIS [None]
  - URETERIC OBSTRUCTION [None]
